FAERS Safety Report 8054309-3 (Version None)
Quarter: 2012Q1

REPORT INFORMATION
  Report Type: 
  Country: None (occurrence: None)
  Receive Date: 20120118
  Receipt Date: 20120112
  Transmission Date: 20120608
  Serious: Yes (Other)
  Sender: FDA-Public Use
  Company Number: PHHY2011TR113214

PATIENT
  Age: 38 Year
  Sex: Male

DRUGS (3)
  1. ZONISAMIDE [Suspect]
     Indication: EPILEPSY
     Dosage: 100 MG
     Route: 048
  2. ZOLEDRONOC ACID [Suspect]
     Indication: OSTEOPOROSIS
     Dosage: 5 MG
     Route: 042
  3. TEGRETOL [Concomitant]
     Dosage: UNK UKN, UNK

REACTIONS (6)
  - EPILEPSY [None]
  - UVEITIS [None]
  - HALO VISION [None]
  - EYE PAIN [None]
  - PYREXIA [None]
  - OCULAR HYPERAEMIA [None]
